FAERS Safety Report 5299703-9 (Version None)
Quarter: 2007Q2

REPORT INFORMATION
  Report Type: 
  Country: None (occurrence: None)
  Receive Date: 20070410
  Receipt Date: 20070330
  Transmission Date: 20071010
  Serious: Yes (Death)
  Sender: FDA-Public Use
  Company Number: GXKR2007AU03083

PATIENT
  Age: 39 Year
  Sex: Male

DRUGS (4)
  1. AMITRIPTYLINE HCL [Suspect]
     Dosage: 200 MG, QD
  2. VALPROATE SODIUM [Suspect]
     Dosage: 500 MG, BID
  3. HALOPERIDOL [Suspect]
     Dosage: 10 MG, TID
  4. LITHIUM CARBONATE [Suspect]
     Dosage: 200 MG, BID

REACTIONS (6)
  - ANTIDEPRESSANT DRUG LEVEL INCREASED [None]
  - ANTIPSYCHOTIC DRUG LEVEL [None]
  - BRUGADA SYNDROME [None]
  - DRUG LEVEL DECREASED [None]
  - MANIA [None]
  - SUDDEN DEATH [None]
